FAERS Safety Report 8132310-9 (Version None)
Quarter: 2012Q1

REPORT INFORMATION
  Report Type: 
  Country: None (occurrence: None)
  Receive Date: 20120213
  Receipt Date: 20120210
  Transmission Date: 20120608
  Serious: Yes (Death)
  Sender: FDA-Public Use
  Company Number: ZA-PFIZER INC-2010170335

PATIENT
  Age: 59 Year
  Sex: Female

DRUGS (3)
  1. LAMOTRIGINE [Concomitant]
     Dosage: 100 MG BD
  2. SUTENT [Suspect]
     Indication: GASTROINTESTINAL STROMAL TUMOUR
     Dosage: 50 MG, DAILY FOR 4 WEEKS ON 6 WEEK CYCLE
     Route: 048
     Dates: start: 20091022, end: 20091029
  3. LAMOTRIGINE [Concomitant]
     Indication: EPILEPSY
     Dosage: 150 MG MANE, 200 MG NOCTE
     Route: 048

REACTIONS (2)
  - GASTROINTESTINAL STROMAL TUMOUR [None]
  - DISEASE PROGRESSION [None]
